FAERS Safety Report 11621855 (Version 4)
Quarter: 2016Q3

REPORT INFORMATION
  Report Type: Spontaneous
  Country: JP (occurrence: JP)
  Receive Date: 20151013
  Receipt Date: 20160708
  Transmission Date: 20161109
  Serious: Yes (Death, Hospitalization, Other)
  Sender: FDA-Public Use
  Company Number: JP-009507513-1509JPN009227

PATIENT
  Age: 89 Year
  Sex: Male

DRUGS (11)
  1. MENESIT TABLETS - 100 [Suspect]
     Active Substance: CARBIDOPA\LEVODOPA
     Dosage: 100 MG, DIVIDED DOSE FREQUENCY UNKNOWN
     Route: 051
     Dates: start: 20150925, end: 20150929
  2. NEUPRO [Suspect]
     Active Substance: ROTIGOTINE
     Indication: PROGRESSIVE SUPRANUCLEAR PALSY
     Dosage: 4.5 MG, DIVIDED DOSE FREQUENCY UNKNOWN
     Route: 062
     Dates: start: 201501, end: 20150915
  3. CLEANAL [Concomitant]
     Active Substance: FUDOSTEINE
     Dosage: DAILY DOSE UNKNOWN
     Route: 048
     Dates: start: 20150409, end: 20151206
  4. MENESIT TABLETS - 100 [Suspect]
     Active Substance: CARBIDOPA\LEVODOPA
     Indication: PARKINSON^S DISEASE
     Dosage: 400 MG, DIVIDED DOSE FREQUENCY UNKNOWN
     Route: 051
     Dates: start: 201501, end: 20150914
  5. MENESIT TABLETS - 100 [Suspect]
     Active Substance: CARBIDOPA\LEVODOPA
     Dosage: 300 MG, DIVIDED DOSE FREQUENCY UNKNOWN
     Route: 051
     Dates: start: 20150915, end: 20150919
  6. MENESIT TABLETS - 100 [Suspect]
     Active Substance: CARBIDOPA\LEVODOPA
     Dosage: 200 MG, DIVIDED DOSE FREQUENCY UNKNOWN
     Route: 051
     Dates: start: 20150920, end: 20150924
  7. ACECOL [Concomitant]
     Active Substance: TEMOCAPRIL HYDROCHLORIDE
     Dosage: DAILY DOSAGE UNKNOWN
     Route: 048
     Dates: start: 20150409, end: 20150910
  8. PROTECADIN [Concomitant]
     Active Substance: LAFUTIDINE
     Dosage: DAILY DOSAGE UNKNOWN
     Route: 048
     Dates: start: 20150903, end: 20151206
  9. NORVASC [Concomitant]
     Active Substance: AMLODIPINE BESYLATE
     Dosage: DAILY DOSAGE UNKNOWN
     Route: 048
     Dates: end: 20150514
  10. URSODEOXYCHOLIC ACID TOWA [Concomitant]
     Dosage: DAILY DOSAGE UNKNOWN
     Route: 065
     Dates: start: 20150904, end: 20151206
  11. TAKEPRON [Concomitant]
     Active Substance: LANSOPRAZOLE
     Dosage: DAILY DOSAGE UNKNOWN
     Route: 048
     Dates: end: 20150902

REACTIONS (4)
  - Platelet count decreased [Recovered/Resolved]
  - Pneumonia [Fatal]
  - Catheter management [Unknown]
  - Anaemia [Not Recovered/Not Resolved]

NARRATIVE: CASE EVENT DATE: 2015
